FAERS Safety Report 19805504 (Version 1)
Quarter: 2021Q3

REPORT INFORMATION
  Report Type: Spontaneous
  Country: GB (occurrence: GB)
  Receive Date: 20210908
  Receipt Date: 20210908
  Transmission Date: 20211014
  Serious: Yes (Hospitalization, Other)
  Sender: FDA-Public Use
  Company Number: GB-MYLANLABS-2021M1059555

PATIENT
  Age: 74 Year
  Sex: Male
  Weight: 62 kg

DRUGS (4)
  1. CARBOCYSTEINE [Suspect]
     Active Substance: CARBOCYSTEINE
     Indication: CHRONIC OBSTRUCTIVE PULMONARY DISEASE
     Dosage: 750 MILLIGRAM, TID
     Route: 048
     Dates: end: 20210902
  2. MIRTAZAPIN [Concomitant]
     Active Substance: MIRTAZAPINE
     Indication: ILL-DEFINED DISORDER
     Dosage: UNK
  3. APIXABAN [Suspect]
     Active Substance: APIXABAN
     Indication: ATRIAL FIBRILLATION
     Dosage: 5 MILLIGRAM, BID
     Route: 048
     Dates: end: 20210829
  4. SENNA                              /00142201/ [Concomitant]
     Active Substance: SENNA LEAF
     Indication: ILL-DEFINED DISORDER
     Dosage: UNK

REACTIONS (3)
  - Upper gastrointestinal haemorrhage [Recovering/Resolving]
  - Anaemia [Unknown]
  - Melaena [Unknown]

NARRATIVE: CASE EVENT DATE: 20210829
